FAERS Safety Report 22647957 (Version 1)
Quarter: 2023Q2

REPORT INFORMATION
  Report Type: Spontaneous
  Country: BG (occurrence: BG)
  Receive Date: 20230628
  Receipt Date: 20230628
  Transmission Date: 20230721
  Serious: Yes (Hospitalization, Other)
  Sender: FDA-Public Use
  Company Number: BG-BoehringerIngelheim-2023-BI-245449

PATIENT
  Age: 68 Year
  Sex: Male

DRUGS (4)
  1. LINAGLIPTIN\METFORMIN HYDROCHLORIDE [Suspect]
     Active Substance: LINAGLIPTIN\METFORMIN HYDROCHLORIDE
     Indication: Diabetes mellitus
     Dosage: LINAGLIPTIN 2.5 MG/METFORMIN HYDROCHLORIDE 1000 MG
  2. thioctic acid 600 mg daily [Concomitant]
     Indication: Diabetic neuropathy
  3. lisinopril  10 mg [Concomitant]
     Indication: Hypertension
  4. atorvastatin 10 mg daily [Concomitant]
     Indication: Dyslipidaemia

REACTIONS (9)
  - Body temperature increased [Recovered/Resolved]
  - Adenocarcinoma [Unknown]
  - Chills [Recovered/Resolved]
  - Fatigue [Recovered/Resolved]
  - Productive cough [Recovered/Resolved]
  - Sputum discoloured [Recovered/Resolved]
  - Nausea [Recovered/Resolved]
  - Vomiting [Recovered/Resolved]
  - Anaemia [Unknown]
